FAERS Safety Report 6518817-6 (Version None)
Quarter: 2009Q4

REPORT INFORMATION
  Report Type: 
  Country: None (occurrence: None)
  Receive Date: 20091228
  Receipt Date: 20091217
  Transmission Date: 20100525
  Serious: Yes (Hospitalization)
  Sender: FDA-Public Use
  Company Number: JP-ASTRAZENECA-2009SE32533

PATIENT
  Age: 84 Year
  Sex: Female
  Weight: 47 kg

DRUGS (9)
  1. OMEPRAL TABLETS [Suspect]
     Route: 048
     Dates: start: 20080401, end: 20081010
  2. OMEPRAL TABLETS [Suspect]
     Route: 048
     Dates: start: 20081019, end: 20081028
  3. LORCAM [Suspect]
     Indication: SCOLIOSIS
     Route: 048
     Dates: end: 20081010
  4. LORCAM [Suspect]
     Route: 048
     Dates: start: 20081019, end: 20081028
  5. ASPIRIN [Suspect]
     Route: 048
     Dates: end: 20081010
  6. CALONAL [Concomitant]
  7. ALDACTONE [Concomitant]
     Route: 048
  8. LASIX [Concomitant]
  9. AMOBAN [Concomitant]
     Route: 048

REACTIONS (1)
  - COLITIS COLLAGENOUS [None]
